FAERS Safety Report 6807246-3 (Version None)
Quarter: 2010Q2

REPORT INFORMATION
  Report Type: 
  Country: None (occurrence: None)
  Receive Date: 20100629
  Receipt Date: 20080804
  Transmission Date: 20101027
  Serious: No
  Sender: FDA-Public Use
  Company Number: US-PFIZER INC-2008064123

PATIENT
  Sex: Female
  Weight: 73.2 kg

DRUGS (6)
  1. XANAX [Suspect]
     Indication: ANXIETY
  2. XANAX [Suspect]
     Indication: PANIC ATTACK
  3. ALPRAZOLAM [Suspect]
     Indication: ANXIETY
  4. ALPRAZOLAM [Suspect]
     Indication: PANIC ATTACK
  5. IMIPRAMINE [Concomitant]
  6. HYDROCODONE [Concomitant]

REACTIONS (6)
  - DRUG INEFFECTIVE [None]
  - DRUG LEVEL DECREASED [None]
  - DRY MOUTH [None]
  - INAPPROPRIATE SCHEDULE OF DRUG ADMINISTRATION [None]
  - INCORRECT DOSE ADMINISTERED [None]
  - SOMNOLENCE [None]
